FAERS Safety Report 7430878-9 (Version None)
Quarter: 2011Q2

REPORT INFORMATION
  Report Type: 
  Country: None (occurrence: None)
  Receive Date: 20110421
  Receipt Date: 20110412
  Transmission Date: 20111010
  Serious: Yes (Hospitalization)
  Sender: FDA-Public Use
  Company Number: IT-JNJFOC-20110407324

PATIENT
  Sex: Male
  Weight: 63 kg

DRUGS (5)
  1. TORVAST [Concomitant]
     Route: 048
  2. CARVEDILOLO [Concomitant]
     Route: 048
  3. METHOTREXATE [Concomitant]
     Route: 030
  4. GOLIMUMAB [Suspect]
     Indication: RHEUMATOID ARTHRITIS
     Route: 058
  5. ALENDROS [Concomitant]
     Route: 048

REACTIONS (1)
  - CARDIAC FAILURE CONGESTIVE [None]
